FAERS Safety Report 10087954 (Version 1)
Quarter: 2014Q2

REPORT INFORMATION
  Report Type: Spontaneous
  Country: US (occurrence: US)
  Receive Date: 20140419
  Receipt Date: 20140419
  Transmission Date: 20141212
  Serious: No
  Sender: FDA-Public Use
  Company Number: US-009507513-1404USA007078

PATIENT
  Age: 15 Year
  Sex: Female

DRUGS (1)
  1. NEXPLANON [Suspect]
     Indication: CONTRACEPTION
     Dosage: UNK
     Route: 059
     Dates: start: 20140321, end: 20140410

REACTIONS (5)
  - Implant site pain [Recovering/Resolving]
  - Implant site irritation [Recovering/Resolving]
  - Device breakage [Recovering/Resolving]
  - Device kink [Recovering/Resolving]
  - Product quality issue [Unknown]
